FAERS Safety Report 7157035-8 (Version None)
Quarter: 2010Q4

REPORT INFORMATION
  Report Type: 
  Country: None (occurrence: None)
  Receive Date: 20101214
  Receipt Date: 20100122
  Transmission Date: 20110411
  Serious: No
  Sender: FDA-Public Use
  Company Number: US-ASTRAZENECA-2010SE03041

PATIENT
  Age: 74 Year
  Sex: Female
  Weight: 77.1 kg

DRUGS (6)
  1. CRESTOR [Suspect]
     Indication: BLOOD CHOLESTEROL INCREASED
     Route: 048
     Dates: start: 20090101, end: 20100116
  2. CRESTOR [Suspect]
     Indication: BLOOD TRIGLYCERIDES
     Route: 048
     Dates: start: 20090101, end: 20100116
  3. BENICAR [Concomitant]
  4. ATENOLOL [Concomitant]
  5. THYROID MEDICATION [Concomitant]
  6. VITAMINS [Concomitant]

REACTIONS (2)
  - MYALGIA [None]
  - NODULE [None]
